FAERS Safety Report 16534602 (Version 1)
Quarter: 2019Q3

REPORT INFORMATION
  Report Type: Spontaneous
  Country: US (occurrence: US)
  Receive Date: 20190705
  Receipt Date: 20190705
  Transmission Date: 20191004
  Serious: No
  Sender: FDA-Public Use
  Company Number: US-UNITED THERAPEUTICS-UNT-2019-010750

PATIENT
  Age: 56 Year
  Sex: Female

DRUGS (4)
  1. LASIX [Suspect]
     Active Substance: FUROSEMIDE
     Indication: PRODUCT USED FOR UNKNOWN INDICATION
     Dosage: UNK, QD
     Route: 065
  2. TYVASO [Suspect]
     Active Substance: TREPROSTINIL
     Indication: PULMONARY ARTERIAL HYPERTENSION
     Dosage: 18 ?G, QID
     Dates: start: 20190607
  3. TYVASO [Suspect]
     Active Substance: TREPROSTINIL
     Dosage: 54 ?G, QID
     Dates: start: 20190610
  4. TYVASO [Suspect]
     Active Substance: TREPROSTINIL
     Dosage: 54 ?G, QID
     Dates: start: 20190606

REACTIONS (10)
  - Poor quality sleep [Unknown]
  - Abdominal pain upper [Unknown]
  - Chest pain [Recovered/Resolved]
  - Diarrhoea [Unknown]
  - Fatigue [Unknown]
  - Fluid retention [Unknown]
  - Dysphonia [Unknown]
  - Headache [Not Recovered/Not Resolved]
  - Peripheral swelling [Unknown]
  - Chest discomfort [Recovering/Resolving]

NARRATIVE: CASE EVENT DATE: 201906
